FAERS Safety Report 7590394-0 (Version None)
Quarter: 2011Q3

REPORT INFORMATION
  Report Type: 
  Country: None (occurrence: None)
  Receive Date: 20110705
  Receipt Date: 20110624
  Transmission Date: 20111222
  Serious: Yes (Other)
  Sender: FDA-Public Use
  Company Number: PHHY2011GB56248

PATIENT
  Age: 53 Year
  Sex: Male
  Weight: 130 kg

DRUGS (17)
  1. BISOPROLOL FUMARATE [Concomitant]
     Indication: HYPERTENSION
     Dosage: 1.25 MG, QD
  2. CITALOPRAM [Concomitant]
     Indication: DEPRESSION
     Dosage: 20 MG/DAY
  3. FUROSEMIDE [Concomitant]
     Indication: FLUID RETENTION
     Dosage: 40 MG, QD
  4. WARFARIN SODIUM [Suspect]
     Indication: ANTICOAGULANT THERAPY
     Dosage: 6.5 MG/DAY
     Route: 042
     Dates: start: 20110225
  5. ALLOPURINOL [Concomitant]
     Indication: GOUT
     Dosage: 300 MG, UNK
     Dates: start: 20110503
  6. ALLOPURINOL [Concomitant]
     Dosage: 100 MG/DAY
     Dates: start: 20110420
  7. ALLOPURINOL [Concomitant]
     Dosage: 200 MG, UNK
     Dates: start: 20110427
  8. LANSOPRAZOLE [Concomitant]
     Indication: ABDOMINAL DISCOMFORT
     Dosage: 15 MG, QD
  9. ROSUVASTATIN [Concomitant]
     Indication: BLOOD CHOLESTEROL INCREASED
     Dosage: 10 MG, QD
  10. RAMIPRIL [Concomitant]
     Indication: HYPERTENSION
     Dosage: 2.5 MG, BID
  11. WARFARIN SODIUM [Suspect]
     Dosage: 8 MG/DAY
     Route: 048
     Dates: start: 20110322
  12. PIOGLITAZONE [Concomitant]
     Indication: DIABETES MELLITUS
     Dosage: 30 MG, QD
  13. AMLODIPINE [Concomitant]
     Indication: HYPERTENSION
     Dosage: 5 MG, QD
  14. METFORMIN HCL [Concomitant]
     Indication: DIABETES MELLITUS
     Dosage: 1000 MG, QID
  15. EZETIMIBE [Concomitant]
     Indication: BLOOD CHOLESTEROL INCREASED
  16. FUROSEMIDE [Concomitant]
     Indication: SWELLING
  17. GLICLAZIDE [Concomitant]
     Indication: DIABETES MELLITUS
     Dosage: 80 MG, QD

REACTIONS (5)
  - ANAEMIA [None]
  - MUSCULOSKELETAL STIFFNESS [None]
  - PERIPHERAL COLDNESS [None]
  - ARTHRALGIA [None]
  - RED BLOOD CELL SEDIMENTATION RATE INCREASED [None]
